FAERS Safety Report 8262959-4 (Version None)
Quarter: 2012Q2

REPORT INFORMATION
  Report Type: 
  Country: None (occurrence: None)
  Receive Date: 20120405
  Receipt Date: 20120326
  Transmission Date: 20120825
  Serious: Yes (Other)
  Sender: FDA-Public Use
  Company Number: IT-TEVA-330469ISR

PATIENT
  Age: 31 Year
  Sex: Female

DRUGS (7)
  1. ONCOVIN [Suspect]
  2. PREDNISONE TAB [Suspect]
     Indication: HODGKIN'S DISEASE
     Dosage: RECEIVED 6 COURSES OF CHEMOTHERAPY
     Route: 065
  3. BLEOMYCIN SULFATE [Suspect]
     Indication: HODGKIN'S DISEASE
     Dosage: RECEIVED 6 COURSES OF CHEMOTHERAPY
     Route: 065
  4. DOXORUBICIN HCL [Suspect]
     Indication: HODGKIN'S DISEASE
     Dosage: RECEIVED 6 COURSES OF CHEMOTHERAPY
     Route: 065
  5. CHLORMETHINE [Suspect]
     Indication: HODGKIN'S DISEASE
     Dosage: RECEIVED 6 COURSES OF CHEMOTHERAPY
     Route: 065
  6. PROCARBAZINE HYDROCHLORIDE [Suspect]
     Indication: HODGKIN'S DISEASE
     Dosage: RECEIVED 6 COURSES OF CHEMOTHERAPY
     Route: 065
  7. VINBLASTINE SULFATE [Suspect]
     Indication: HODGKIN'S DISEASE
     Dosage: RECEIVED 6 COURSES OF CHEMOTHERAPY
     Route: 065

REACTIONS (5)
  - GASTROOESOPHAGEAL REFLUX DISEASE [None]
  - MUCOSAL INFLAMMATION [None]
  - VOMITING [None]
  - DYSPHAGIA [None]
  - BARRETT'S OESOPHAGUS [None]
